FAERS Safety Report 6998919-0 (Version None)
Quarter: 2010Q3

REPORT INFORMATION
  Report Type: 
  Country: None (occurrence: None)
  Receive Date: 20100920
  Receipt Date: 20090929
  Transmission Date: 20110219
  Serious: Yes (Other)
  Sender: FDA-Public Use
  Company Number: US-ASTRAZENECA-2006UW21175

PATIENT
  Age: 547 Month
  Sex: Male
  Weight: 88.9 kg

DRUGS (12)
  1. SEROQUEL [Suspect]
     Indication: SCHIZOPHRENIA
     Dosage: 100MG - 300MG
     Route: 048
     Dates: start: 20031201, end: 20060701
  2. SEROQUEL [Suspect]
     Indication: DEPRESSION
     Dosage: 100MG - 300MG
     Route: 048
     Dates: start: 20031201, end: 20060701
  3. SEROQUEL [Suspect]
     Indication: SLEEP DISORDER
     Dosage: 100MG - 300MG
     Route: 048
     Dates: start: 20031201, end: 20060701
  4. SEROQUEL [Suspect]
     Dosage: 100-300 MG
     Route: 048
     Dates: start: 20040415
  5. SEROQUEL [Suspect]
     Dosage: 100-300 MG
     Route: 048
     Dates: start: 20040415
  6. SEROQUEL [Suspect]
     Dosage: 100-300 MG
     Route: 048
     Dates: start: 20040415
  7. RISPERDAL CONSTA [Suspect]
     Dosage: 25-50 MG
     Dates: start: 20050322
  8. ZYPREXA [Suspect]
  9. HALDOL [Concomitant]
  10. COGENTIN [Concomitant]
     Dosage: 2 MG, ONCE DAILY/TWO TIMES A DAY
     Dates: start: 19981015
  11. WELLBUTRIN [Concomitant]
     Dates: start: 20050714
  12. ZOLOFT [Concomitant]
     Dates: start: 19981015

REACTIONS (3)
  - DIABETES MELLITUS [None]
  - HYPERGLYCAEMIA [None]
  - PANCREATITIS [None]
